FAERS Safety Report 5404758-4 (Version None)
Quarter: 2007Q3

REPORT INFORMATION
  Report Type: 
  Country: None (occurrence: None)
  Receive Date: 20070801
  Receipt Date: 20070720
  Transmission Date: 20080115
  Serious: Yes (Congenital Anomaly)
  Sender: FDA-Public Use
  Company Number: 2007AL002939

PATIENT
  Age: 12 Month

DRUGS (4)
  1. DIAZEPAM [Suspect]
     Dosage: TRPL
     Route: 064
  2. METHADONE HCL [Concomitant]
  3. AMITRIPTYLINE HCL [Concomitant]
  4. CANNABIS [Concomitant]

REACTIONS (5)
  - DEVELOPMENTAL DELAY [None]
  - DRUG EXPOSURE DURING PREGNANCY [None]
  - DRUG WITHDRAWAL SYNDROME NEONATAL [None]
  - NYSTAGMUS [None]
  - STRABISMUS [None]
